FAERS Safety Report 10049436 (Version 1)
Quarter: 2014Q2

REPORT INFORMATION
  Report Type: Spontaneous
  Country: TW (occurrence: TW)
  Receive Date: 20140401
  Receipt Date: 20140401
  Transmission Date: 20141212
  Serious: Yes (Other)
  Sender: FDA-Public Use
  Company Number: TW-JNJFOC-20140314125

PATIENT
  Age: 33 Year
  Sex: Male
  Weight: 80 kg

DRUGS (2)
  1. STELARA [Suspect]
     Indication: PSORIASIS
     Route: 058
     Dates: start: 20140108, end: 20140207
  2. MTX [Concomitant]
     Indication: PSORIASIS
     Dosage: 7.5 MG, Q.7H. FOR 2 DAYS EVERY WEEK

REACTIONS (1)
  - Herpes zoster [Not Recovered/Not Resolved]
